FAERS Safety Report 8825178 (Version 1)
Quarter: 2012Q4

REPORT INFORMATION
  Report Type: 
  Country: BR (occurrence: BR)
  Receive Date: 20121004
  Receipt Date: 20121004
  Transmission Date: 20130627
  Serious: Yes (Hospitalization)
  Sender: FDA-Public Use
  Company Number: BR-GLAXOSMITHKLINE-A0996160A

PATIENT
  Age: 3 Year
  Sex: Female
  Weight: 15 kg

DRUGS (1)
  1. ZINNAT [Suspect]
     Indication: URINARY TRACT INFECTION
     Dosage: 4ML Twice per day
     Dates: start: 20120916, end: 20120916

REACTIONS (4)
  - Haematochezia [Recovering/Resolving]
  - Abdominal abscess [Recovering/Resolving]
  - Mucous stools [Recovering/Resolving]
  - Product quality issue [Unknown]
